FAERS Safety Report 6676774-6 (Version None)
Quarter: 2010Q2

REPORT INFORMATION
  Report Type: 
  Country: None (occurrence: None)
  Receive Date: 20100409
  Receipt Date: 20100409
  Transmission Date: 20101027
  Serious: Yes (Other)
  Sender: FDA-Public Use
  Company Number: None

PATIENT
  Age: 68 Year
  Sex: Male
  Weight: 90.7194 kg

DRUGS (1)
  1. DICYCLOMINE [Suspect]
     Dosage: 20 MG UP TO 4 X PER DAY MOUTH WATSON 795
     Route: 048
     Dates: start: 20100114, end: 20100207

REACTIONS (2)
  - HEADACHE [None]
  - TINNITUS [None]
